FAERS Safety Report 21376130 (Version 1)
Quarter: 2022Q3

REPORT INFORMATION
  Report Type: Spontaneous
  Country: US (occurrence: US)
  Receive Date: 20220926
  Receipt Date: 20220926
  Transmission Date: 20221026
  Serious: No
  Sender: FDA-Public Use
  Company Number: US-drreddys-SPO/USA/22/0154488

PATIENT
  Age: 30 Year
  Sex: Male

DRUGS (4)
  1. ZENATANE [Suspect]
     Active Substance: ISOTRETINOIN
     Indication: Product used for unknown indication
     Dosage: RMA ISSUE DATE: 14 MARCH 2022 12:18:22 PM, 14 APRIL 2022 04:13:12 PM, 13 MAY 2022 01:40:37 PM
  2. ZENATANE [Suspect]
     Active Substance: ISOTRETINOIN
     Dosage: RMA ISSUE DATE: 14 MARCH 2022 12:18:22 PM, 14 APRIL 2022 04:13:12 PM, 13 MAY 2022 01:40:37 PM
  3. ZENATANE [Suspect]
     Active Substance: ISOTRETINOIN
     Dosage: RMA ISSUE DATE: 13 JANUARY 2022 05:12:32 PM, 11 FEBRUARY 2022 06:18:49 PM,14 MARCH 2022 12:18:22 PM
  4. ZENATANE [Suspect]
     Active Substance: ISOTRETINOIN
     Dosage: RMA ISSUE DATE: 11 FEBRUARY 2022 06:18:49 PM

REACTIONS (1)
  - Treatment noncompliance [Unknown]
